FAERS Safety Report 9221483 (Version 1)
Quarter: 2013Q2

REPORT INFORMATION
  Report Type: Spontaneous
  Country: US (occurrence: None)
  Receive Date: 20130408
  Receipt Date: 20130408
  Transmission Date: 20140414
  Serious: Yes (Hospitalization)
  Sender: FDA-Public Use
  Company Number: None

PATIENT
  Age: 73 Year
  Sex: Female
  Weight: 121 kg

DRUGS (2)
  1. RIVAROXABAN [Suspect]
     Route: 048
  2. DILTIAZEM [Suspect]
     Indication: HYPERTENSION
     Route: 048

REACTIONS (4)
  - Gastrointestinal haemorrhage [None]
  - Anaemia [None]
  - Hypovolaemia [None]
  - Inhibitory drug interaction [None]
